FAERS Safety Report 4440096-4 (Version None)
Quarter: 2004Q3

REPORT INFORMATION
  Report Type: 
  Country: None (occurrence: None)
  Receive Date: 20040902
  Receipt Date: 20040817
  Transmission Date: 20050211
  Serious: Yes (Death, Life-Threatening, Hospitalization)
  Sender: FDA-Public Use
  Company Number: MY-MERCK-0408MYS00011

PATIENT
  Age: 72 Year
  Sex: Female
  Weight: 80 kg

DRUGS (3)
  1. FUROSEMIDE [Suspect]
     Indication: JOINT SWELLING
     Route: 048
     Dates: start: 20040810, end: 20040814
  2. HYZAAR [Suspect]
     Indication: HYPERTENSION
     Route: 048
     Dates: end: 20040814
  3. TICLOPIDINE HYDROCHLORIDE [Concomitant]
     Indication: HEMIPLEGIA
     Route: 048
     Dates: start: 20040810, end: 20040817

REACTIONS (8)
  - ASTHENIA [None]
  - CEREBROVASCULAR ACCIDENT [None]
  - FATIGUE [None]
  - HYPONATRAEMIA [None]
  - JOINT SWELLING [None]
  - MALAISE [None]
  - NAUSEA [None]
  - VOMITING [None]
